FAERS Safety Report 15692658 (Version 1)
Quarter: 2018Q4

REPORT INFORMATION
  Report Type: Spontaneous
  Country: CN (occurrence: CN)
  Receive Date: 20181206
  Receipt Date: 20181206
  Transmission Date: 20190205
  Serious: Yes (Hospitalization)
  Sender: FDA-Public Use
  Company Number: CN-ROCHE-2223228

PATIENT
  Age: 60 Year
  Sex: Female
  Weight: 65 kg

DRUGS (25)
  1. EPIRUBICIN HYDROCHLORIDE. [Suspect]
     Active Substance: EPIRUBICIN HYDROCHLORIDE
     Indication: B-CELL LYMPHOMA
     Route: 041
     Dates: start: 20180325, end: 20180325
  2. CYCLOPHOSPHAMIDE. [Suspect]
     Active Substance: CYCLOPHOSPHAMIDE
     Indication: B-CELL LYMPHOMA
     Route: 041
     Dates: start: 20180325, end: 20180325
  3. PALONOSETRON HYDROCHLORIDE. [Concomitant]
     Active Substance: PALONOSETRON HYDROCHLORIDE
     Indication: VOMITING
     Route: 042
     Dates: start: 20180324, end: 20180325
  4. DEXAMETHASONE SODIUM PHOSPHATE. [Concomitant]
     Active Substance: DEXAMETHASONE SODIUM PHOSPHATE
     Route: 041
     Dates: start: 20180325, end: 20180329
  5. MABTHERA [Suspect]
     Active Substance: RITUXIMAB
     Indication: B-CELL LYMPHOMA
     Route: 041
     Dates: start: 20180324, end: 20180324
  6. CYTARABINE. [Suspect]
     Active Substance: CYTARABINE
     Indication: B-CELL LYMPHOMA
     Route: 037
     Dates: start: 20180329, end: 20180329
  7. L-CARNITINE [Concomitant]
     Active Substance: LEVOCARNITINE
     Route: 042
     Dates: start: 20180319, end: 20180402
  8. DEXAMETHASONE SODIUM PHOSPHATE. [Concomitant]
     Active Substance: DEXAMETHASONE SODIUM PHOSPHATE
     Indication: B-CELL LYMPHOMA
     Route: 041
     Dates: start: 20180324, end: 20180324
  9. ETOPOSIDE. [Suspect]
     Active Substance: ETOPOSIDE
     Indication: B-CELL LYMPHOMA
     Route: 041
     Dates: start: 20180325, end: 20180329
  10. ETOPOSIDE. [Suspect]
     Active Substance: ETOPOSIDE
     Route: 041
     Dates: start: 20180325, end: 20180329
  11. METHOTREXATE. [Suspect]
     Active Substance: METHOTREXATE
     Indication: B-CELL LYMPHOMA
     Route: 037
     Dates: start: 20180329, end: 20180329
  12. THYMOPENTIN [Concomitant]
     Active Substance: THYMOPENTIN
     Route: 058
     Dates: start: 20180323, end: 20180329
  13. ESOMEPRAZOLE MAGNESIUM. [Concomitant]
     Active Substance: ESOMEPRAZOLE MAGNESIUM
     Indication: GASTROINTESTINAL HAEMORRHAGE
     Route: 048
     Dates: start: 20180316, end: 20180327
  14. MABTHERA [Suspect]
     Active Substance: RITUXIMAB
     Route: 041
     Dates: start: 20180324, end: 20180324
  15. OCTREOTIDE ACETATE. [Concomitant]
     Active Substance: OCTREOTIDE ACETATE
     Indication: HAEMORRHAGE
     Route: 058
     Dates: start: 20180327, end: 20180327
  16. ENTECAVIR. [Concomitant]
     Active Substance: ENTECAVIR
     Indication: CHRONIC HEPATITIS B
     Route: 048
     Dates: start: 20180316, end: 20180316
  17. ZOLPIDEM [Concomitant]
     Active Substance: ZOLPIDEM\ZOLPIDEM TARTRATE
     Indication: INSOMNIA
     Route: 048
     Dates: start: 20180321, end: 20180410
  18. ATORVASTATIN CALCIUM. [Concomitant]
     Active Substance: ATORVASTATIN CALCIUM
     Indication: HYPERLIPIDAEMIA
     Route: 048
     Dates: start: 20180316, end: 20180327
  19. VORICONAZOLE. [Concomitant]
     Active Substance: VORICONAZOLE
     Indication: LUNG INFECTION
     Route: 041
     Dates: start: 20180318, end: 20180403
  20. OMEPRAZOLE SODIUM [Concomitant]
     Active Substance: OMEPRAZOLE SODIUM
     Indication: GASTROINTESTINAL HAEMORRHAGE
     Route: 041
     Dates: start: 20180327, end: 20180402
  21. COENZYME Q10 [Concomitant]
     Active Substance: UBIDECARENONE
     Route: 048
     Dates: start: 20180329, end: 20180410
  22. RIBASPHERE RIBAPAK [Concomitant]
     Active Substance: RIBAVIRIN
     Route: 048
     Dates: start: 20180329, end: 20180410
  23. VINCRISTINE SULFATE. [Suspect]
     Active Substance: VINCRISTINE SULFATE
     Indication: B-CELL LYMPHOMA
     Route: 042
     Dates: start: 20180325, end: 20180325
  24. ALUMINUM MAGNESIUM CARBONATE [Concomitant]
     Route: 048
     Dates: start: 20180316, end: 20180410
  25. CEFOPERAZONE SODIUM/SULBACTAM SODIUM [Concomitant]
     Active Substance: CEFOPERAZONE SODIUM\SULBACTAM SODIUM
     Indication: LUNG INFECTION
     Route: 041
     Dates: start: 20180318, end: 20180403

REACTIONS (1)
  - Bone marrow failure [Recovering/Resolving]

NARRATIVE: CASE EVENT DATE: 20180401
